FAERS Safety Report 14007436 (Version 2)
Quarter: 2017Q4

REPORT INFORMATION
  Report Type: Spontaneous
  Country: JP (occurrence: JP)
  Receive Date: 20170925
  Receipt Date: 20171017
  Transmission Date: 20180321
  Serious: Yes (Hospitalization)
  Sender: FDA-Public Use
  Company Number: PHJP2017JP029007

PATIENT
  Age: 89 Year
  Sex: Female

DRUGS (1)
  1. STALEVO [Suspect]
     Active Substance: CARBIDOPA\ENTACAPONE\LEVODOPA
     Indication: PRODUCT USED FOR UNKNOWN INDICATION
     Dosage: 1 DF, QID (1 DF: CARBIDOPA 10MG, ENTACAPONE 100MG, LEVODOPA 100MG, QID)
     Route: 048

REACTIONS (1)
  - Fracture [Unknown]
